FAERS Safety Report 10882981 (Version 1)
Quarter: 2015Q1

REPORT INFORMATION
  Report Type: Spontaneous
  Country: US (occurrence: US)
  Receive Date: 20150303
  Receipt Date: 20150303
  Transmission Date: 20150721
  Serious: No
  Sender: FDA-Public Use
  Company Number: US-GLAXOSMITHKLINE-US2015009389

PATIENT
  Sex: Female

DRUGS (3)
  1. PROVENTIL [Concomitant]
     Active Substance: ALBUTEROL
  2. FLOVENT [Suspect]
     Active Substance: FLUTICASONE PROPIONATE
     Indication: ASTHMA
     Dosage: 2 PUFF(S), BID
     Route: 055
  3. SEREVENT DISKUS [Suspect]
     Active Substance: SALMETEROL XINAFOATE
     Indication: ASTHMA
     Dosage: 1 PUFF(S), BID
     Route: 055
     Dates: start: 2005

REACTIONS (11)
  - Hypersensitivity [Recovering/Resolving]
  - Dyspnoea [Recovering/Resolving]
  - Gait disturbance [Recovering/Resolving]
  - General physical health deterioration [Recovering/Resolving]
  - Oral disorder [Not Recovered/Not Resolved]
  - Myalgia [Recovering/Resolving]
  - Oropharyngeal pain [Not Recovered/Not Resolved]
  - Fibromyalgia [Recovering/Resolving]
  - Throat irritation [Not Recovered/Not Resolved]
  - Candida infection [Not Recovered/Not Resolved]
  - Arthralgia [Recovering/Resolving]

NARRATIVE: CASE EVENT DATE: 2014
